FAERS Safety Report 16141617 (Version 3)
Quarter: 2019Q2

REPORT INFORMATION
  Report Type: Spontaneous
  Country: TW (occurrence: TW)
  Receive Date: 20190401
  Receipt Date: 20190416
  Transmission Date: 20190711
  Serious: Yes (Other)
  Sender: FDA-Public Use
  Company Number: TW-ELI_LILLY_AND_COMPANY-TW201903010576

PATIENT
  Age: 83 Year
  Sex: Female

DRUGS (1)
  1. FORTEO [Suspect]
     Active Substance: TERIPARATIDE
     Indication: OSTEOPOROSIS
     Dosage: UNK UNK, DAILY
     Route: 065
     Dates: start: 20190113

REACTIONS (4)
  - Oedema peripheral [Recovering/Resolving]
  - Pleural effusion [Recovered/Resolved]
  - Face oedema [Recovering/Resolving]
  - Renal injury [Recovered/Resolved]

NARRATIVE: CASE EVENT DATE: 201902
